FAERS Safety Report 22621601 (Version 1)
Quarter: 2023Q2

REPORT INFORMATION
  Report Type: Spontaneous
  Country: US (occurrence: None)
  Receive Date: 20230619
  Receipt Date: 20230619
  Transmission Date: 20230721
  Serious: Yes (Other)
  Sender: FDA-Public Use
  Company Number: None

PATIENT
  Age: 53 Year
  Sex: Female
  Weight: 90 kg

DRUGS (4)
  1. LORAZEPAM [Suspect]
     Active Substance: LORAZEPAM
     Indication: Anxiety
     Dosage: 90 TABLETS  ORAL?
     Route: 048
  2. ESCITALOPRAM [Suspect]
     Active Substance: ESCITALOPRAM OXALATE
  3. ATORVASTATIN [Suspect]
     Active Substance: ATORVASTATIN
  4. womans daily vitamin [Concomitant]

REACTIONS (6)
  - Product commingling [None]
  - Product dispensing error [None]
  - Product dispensing error [None]
  - Product dispensing error [None]
  - Physical product label issue [None]
  - Drug dispensed to wrong patient [None]
